FAERS Safety Report 5233535-2 (Version None)
Quarter: 2007Q1

REPORT INFORMATION
  Report Type: 
  Country: None (occurrence: None)
  Receive Date: 20061204
  Receipt Date: 20060818
  Transmission Date: 20070707
  Serious: No
  Sender: FDA-Public Use
  Company Number: 2006-BP-05853BP

PATIENT
  Age: 65 Year
  Sex: Male
  Weight: 62.6 kg

DRUGS (18)
  1. SPIRIVA [Suspect]
     Indication: CHRONIC OBSTRUCTIVE PULMONARY DISEASE
     Dosage: 18 MCG (18 MCG,1 QD),IH
     Route: 055
     Dates: start: 20060401
  2. SPIRIVA [Suspect]
     Indication: EMPHYSEMA
     Dosage: 18 MCG (18 MCG,1 QD),IH
     Route: 055
     Dates: start: 20060401
  3. SPIRIVA [Suspect]
     Indication: PNEUMONIA
     Dosage: 18 MCG (18 MCG,1 QD),IH
     Route: 055
     Dates: start: 20060401
  4. SPIRIVA [Suspect]
  5. SPIRIVA [Suspect]
  6. CELEBREX [Concomitant]
  7. PRILOSEC [Concomitant]
  8. OXYCODONE HCL [Concomitant]
  9. OXYCONTIN [Concomitant]
  10. TRAZODONE HCL [Concomitant]
  11. AMBIEN [Concomitant]
  12. LEXAPRO [Concomitant]
  13. LIPITOR [Concomitant]
  14. COSOPT (COSOPT /01419801/) [Concomitant]
  15. ALPHAGAN [Concomitant]
  16. ZALATAN (ALL OTHER THERAPEUTIC PRODUCTS) [Concomitant]
  17. PLAVIX [Concomitant]
  18. NITROSTAT [Concomitant]

REACTIONS (1)
  - CHOKING [None]
